FAERS Safety Report 8067458-0 (Version None)
Quarter: 2011Q4

REPORT INFORMATION
  Report Type: 
  Country: None (occurrence: None)
  Receive Date: 20111221
  Receipt Date: 20110225
  Transmission Date: 20120403
  Serious: Yes (Disabling)
  Sender: FDA-Public Use
  Company Number: PHHY2011US10147

PATIENT
  Age: 70 Year
  Sex: Female
  Weight: 72.3 kg

DRUGS (15)
  1. LASIX [Concomitant]
  2. FOLIC ACID [Concomitant]
  3. LEVAQUIN [Concomitant]
  4. CIPRO (CIPROFLOXACIN HYDROCHLORIDE) TABLET [Concomitant]
  5. EXJADE [Suspect]
     Indication: HAEMOGLOBINURIA
     Dosage: 500 MG, DAILY, ORAL
     Route: 048
     Dates: start: 20071201, end: 20100201
  6. EXJADE [Suspect]
     Indication: IRON OVERLOAD
     Dosage: 500 MG, DAILY, ORAL
     Route: 048
     Dates: start: 20071201, end: 20100201
  7. GLUCOSAMINE W/CHONDROITIN(CHONDROITIN SULFATE, GLUCOSAMINE) TABLET [Concomitant]
  8. MACROBID (NITROFURANTOIN) CAPSULE [Concomitant]
  9. BONIVA (IBANDRONATE SODIUM) TABLET [Concomitant]
  10. ARANESP [Concomitant]
  11. PROCRIT [Concomitant]
  12. SOLIRIS [Concomitant]
  13. URSODIOL (URSODEOXYCHOLIC ACID) TABLET [Concomitant]
  14. PREDNISONE TAB [Concomitant]
  15. PRILOSEC [Concomitant]

REACTIONS (3)
  - DEAFNESS [None]
  - TINNITUS [None]
  - BLOOD PRESSURE DIASTOLIC DECREASED [None]
